FAERS Safety Report 13926878 (Version 5)
Quarter: 2022Q4

REPORT INFORMATION
  Report Type: Report from Study
  Country: GB (occurrence: GB)
  Receive Date: 20170831
  Receipt Date: 20221024
  Transmission Date: 20230113
  Serious: Yes (Hospitalization)
  Sender: FDA-Public Use
  Company Number: GB-BRISTOL-MYERS SQUIBB COMPANY-BMS-2017-076454

PATIENT
  Age: 72 Year
  Sex: Female
  Weight: 108.40 kg

DRUGS (5)
  1. NIVOLUMAB [Suspect]
     Active Substance: NIVOLUMAB
     Indication: Vulval cancer
     Dosage: 110 MG, UNK
     Route: 042
     Dates: start: 20170720
  2. IPILIMUMAB [Suspect]
     Active Substance: IPILIMUMAB
     Indication: Vulval cancer
     Dosage: 325 MG, UNK
     Route: 042
     Dates: start: 20170720
  3. THYROXINE [Concomitant]
     Active Substance: LEVOTHYROXINE
     Indication: Product used for unknown indication
     Dosage: 125 G, UNK
     Route: 065
  4. FLUCLOXACILLIN [Concomitant]
     Active Substance: FLUCLOXACILLIN
     Indication: Product used for unknown indication
     Dosage: 500 MG, UNK
     Route: 065
     Dates: start: 20170802, end: 20170808
  5. PANTOPRAZOLE [Concomitant]
     Active Substance: PANTOPRAZOLE
     Indication: Product used for unknown indication
     Dosage: 40 MG, UNK
     Route: 065
     Dates: start: 20170809

REACTIONS (1)
  - Hyperglycaemia [Recovered/Resolved]

NARRATIVE: CASE EVENT DATE: 20170818
